FAERS Safety Report 16824194 (Version 1)
Quarter: 2019Q3

REPORT INFORMATION
  Report Type: Spontaneous
  Country: IN (occurrence: IN)
  Receive Date: 20190918
  Receipt Date: 20190918
  Transmission Date: 20191005
  Serious: Yes (Death, Other)
  Sender: FDA-Public Use
  Company Number: IN-FRESENIUS KABI-FK201910199

PATIENT

DRUGS (4)
  1. ETOPOSIDE (MANUFACTURER UNKNOWN) [Suspect]
     Active Substance: ETOPOSIDE
     Indication: LEUKAEMIA RECURRENT
     Dosage: UNKNOWN
     Route: 065
  2. CYCLOPHOSPHAMIDE. [Suspect]
     Active Substance: CYCLOPHOSPHAMIDE
     Indication: LEUKAEMIA RECURRENT
     Dosage: UNKNOWN
     Route: 065
  3. CYTARABINE (MANUFACTURER UNKNOWN) [Suspect]
     Active Substance: CYTARABINE
     Indication: LEUKAEMIA RECURRENT
     Dosage: UNKNOWN
     Route: 065
  4. CLOFARABINE (MANUFACTURER UNKNOWN) [Suspect]
     Active Substance: CLOFARABINE
     Indication: LEUKAEMIA RECURRENT
     Dosage: UNKNOWN
     Route: 065

REACTIONS (3)
  - Febrile neutropenia [Unknown]
  - Sepsis [Fatal]
  - Venoocclusive liver disease [Fatal]
